FAERS Safety Report 9498987 (Version 1)
Quarter: 2013Q3

REPORT INFORMATION
  Report Type: Spontaneous
  Country: US (occurrence: US)
  Receive Date: 20130904
  Receipt Date: 20130904
  Transmission Date: 20140515
  Serious: Yes (Other)
  Sender: FDA-Public Use
  Company Number: ALCN2013US004339

PATIENT
  Age: 40 Year
  Sex: Female
  Weight: 84.35 kg

DRUGS (1)
  1. SIMBRINZA [Suspect]
     Indication: GLAUCOMA
     Dosage: UNK UNK, TID
     Dates: start: 20130820, end: 20130820

REACTIONS (4)
  - Throat tightness [Recovered/Resolved]
  - Chest pain [Recovered/Resolved]
  - Fatigue [Recovered/Resolved]
  - Palpitations [Recovered/Resolved]
